FAERS Safety Report 5159538-4 (Version None)
Quarter: 2006Q4

REPORT INFORMATION
  Report Type: 
  Country: None (occurrence: None)
  Receive Date: 20061120
  Receipt Date: 20061102
  Transmission Date: 20070319
  Serious: Yes (Life-Threatening)
  Sender: FDA-Public Use
  Company Number: 2006RR-04388

PATIENT
  Age: 38 Year
  Sex: Male
  Weight: 102 kg

DRUGS (5)
  1. FLUOXETINE [Suspect]
     Indication: ABNORMAL BEHAVIOUR
     Dosage: 20 MG, QD, ORAL, SEE IMAGE
     Route: 048
     Dates: start: 20061005, end: 20061006
  2. DIAZEPAM [Concomitant]
  3. EPILIM CHRONOSPHERE [Concomitant]
  4. OLANZAPINE [Concomitant]
  5. TEMAZEPAM [Concomitant]

REACTIONS (6)
  - ALCOHOL POISONING [None]
  - BALANCE DISORDER [None]
  - CONFUSIONAL STATE [None]
  - DISORIENTATION [None]
  - DYSARTHRIA [None]
  - SEROTONIN SYNDROME [None]
